FAERS Safety Report 8587469-6 (Version None)
Quarter: 2012Q3

REPORT INFORMATION
  Report Type: 
  Country: None (occurrence: None)
  Receive Date: 20120810
  Receipt Date: 20120730
  Transmission Date: 20120928
  Serious: No
  Sender: FDA-Public Use
  Company Number: US-ASTRAZENECA-2012SE54495

PATIENT
  Age: 46 Year
  Sex: Female

DRUGS (6)
  1. DOXYCYCLINE HCL [Concomitant]
  2. LEVOTHYROXINE SODIUM [Concomitant]
  3. LISINOPRIL [Suspect]
     Route: 048
  4. SUBOXONE [Concomitant]
  5. XANAX [Concomitant]
  6. AMBIEN [Concomitant]
     Indication: SLEEP DISORDER

REACTIONS (4)
  - CELLULITIS [None]
  - ANXIETY [None]
  - DRUG DEPENDENCE [None]
  - DEPRESSION [None]
